FAERS Safety Report 14456774 (Version 1)
Quarter: 2018Q1

REPORT INFORMATION
  Report Type: Spontaneous
  Country: US (occurrence: US)
  Receive Date: 20180126
  Receipt Date: 20180126
  Transmission Date: 20180509
  Serious: Yes (Hospitalization)
  Sender: FDA-Public Use
  Company Number: None

PATIENT
  Age: 63 Year
  Sex: Female
  Weight: 95.5 kg

DRUGS (4)
  1. VINCRISTINE SULFATE. [Suspect]
     Active Substance: VINCRISTINE SULFATE
     Dates: end: 20180115
  2. CYTARABINE. [Suspect]
     Active Substance: CYTARABINE
     Dates: end: 20180108
  3. PREDNISONE. [Suspect]
     Active Substance: PREDNISONE
     Dates: end: 20180114
  4. DAUNORUBICIN [Suspect]
     Active Substance: DAUNORUBICIN
     Dates: end: 20180115

REACTIONS (1)
  - Fall [None]

NARRATIVE: CASE EVENT DATE: 20180118
